FAERS Safety Report 9674982 (Version 1)
Quarter: 2013Q4

REPORT INFORMATION
  Report Type: Report from Study
  Country: DE (occurrence: DE)
  Receive Date: 20131107
  Receipt Date: 20131107
  Transmission Date: 20140711
  Serious: Yes (Other)
  Sender: FDA-Public Use
  Company Number: DE-ASTELLAS-2013US011617

PATIENT
  Sex: Male

DRUGS (8)
  1. TACROLIMUS OINTMENT [Suspect]
     Indication: DERMATITIS ATOPIC
     Dosage: 0.03 %, UNKNOWN/D
     Route: 061
     Dates: start: 20100701
  2. HYDROCORTISONE [Concomitant]
     Indication: DERMATITIS ATOPIC
     Dosage: UNK UNK, UNKNOWN/D
     Route: 061
  3. BETAMETHASONE [Concomitant]
     Indication: DERMATITIS ATOPIC
     Dosage: UNK UNK, UNKNOWN/D
     Route: 061
  4. FLUTICASONE [Concomitant]
     Indication: DERMATITIS ATOPIC
     Dosage: UNK UNK, UNKNOWN/D
     Route: 061
  5. DIPHENHYDRAMINE [Concomitant]
     Indication: DERMATITIS ATOPIC
     Dosage: UNK UNK, UNKNOWN/D
     Route: 065
  6. DIPHENHYDRAMINE [Concomitant]
     Indication: ANTIALLERGIC THERAPY
  7. HYDROXYZINE [Concomitant]
     Indication: DERMATITIS ATOPIC
     Dosage: UNK UNK, UNKNOWN/D
     Route: 065
  8. HYDROXYZINE [Concomitant]
     Indication: ANTIALLERGIC THERAPY

REACTIONS (4)
  - Dislocation of vertebra [Unknown]
  - Spinal disorder [Unknown]
  - Phimosis [Unknown]
  - Infection [Unknown]
